FAERS Safety Report 4303612-9 (Version None)
Quarter: 2004Q1

REPORT INFORMATION
  Report Type: 
  Country: None (occurrence: None)
  Receive Date: 20040225
  Receipt Date: 20040219
  Transmission Date: 20041129
  Serious: Yes (Other)
  Sender: FDA-Public Use
  Company Number: BW-BRISTOL-MYERS SQUIBB COMPANY-12510673

PATIENT
  Age: 30 Year
  Sex: Female

DRUGS (2)
  1. EFAVIRENZ [Suspect]
     Dates: start: 20030423
  2. COMBIVIR [Suspect]
     Dates: start: 20030423

REACTIONS (1)
  - NEUTROPENIA [None]
